FAERS Safety Report 7598608-8 (Version None)
Quarter: 2011Q3

REPORT INFORMATION
  Report Type: 
  Country: None (occurrence: None)
  Receive Date: 20110710
  Receipt Date: 20110629
  Transmission Date: 20111222
  Serious: Yes (Hospitalization)
  Sender: FDA-Public Use
  Company Number: JP-AMGEN-JPNSP2011034409

PATIENT
  Age: 73 Year
  Sex: Female

DRUGS (11)
  1. PLETAL [Concomitant]
     Dosage: UNCERTAINTY
     Route: 048
  2. THEO-DUR [Concomitant]
     Dosage: UNCERTAINTY
     Route: 048
  3. SEVELAMER HYDROCHLORIDE [Concomitant]
     Dosage: UNCERTAINTY
     Route: 048
  4. SELBEX [Concomitant]
     Dosage: UNCERTAINTY
     Route: 048
  5. REMITCH [Concomitant]
     Dosage: UNCERTAINTY
     Route: 048
  6. CINACALCET HYDROCHLORIDE [Suspect]
     Indication: HYPERPARATHYROIDISM SECONDARY
     Route: 048
     Dates: start: 20110117, end: 20110617
  7. MUCOSOLVAN [Concomitant]
     Dosage: UNCERTAINTY
     Route: 048
  8. METHYCOBAL [Concomitant]
     Dosage: UNCERTAINTY
     Route: 048
  9. OMEPRAZOLE [Concomitant]
     Dosage: UNCERTAINTY
     Route: 048
  10. PROMAC [Concomitant]
     Dosage: UNCERTAINTY
     Route: 048
  11. ASPIRIN [Concomitant]
     Dosage: UNCERTAINTY
     Route: 048

REACTIONS (2)
  - TORSADE DE POINTES [None]
  - ELECTROCARDIOGRAM QT PROLONGED [None]
